FAERS Safety Report 5859913-6 (Version None)
Quarter: 2008Q3

REPORT INFORMATION
  Report Type: 
  Country: None (occurrence: None)
  Receive Date: 20080818
  Receipt Date: 20080508
  Transmission Date: 20090109
  Serious: No
  Sender: FDA-Public Use
  Company Number: TPA2008A00673

PATIENT
  Age: 68 Year
  Sex: Male
  Weight: 77.1115 kg

DRUGS (2)
  1. ROZEREM [Suspect]
     Indication: INSOMNIA
     Dosage: 8 MG ORAL, HS, PER ORAL
     Route: 048
     Dates: start: 20080301
  2. LEXAPRO [Concomitant]

REACTIONS (2)
  - HANGOVER [None]
  - POOR QUALITY SLEEP [None]
